FAERS Safety Report 5521877-2 (Version None)
Quarter: 2007Q4

REPORT INFORMATION
  Report Type: 
  Country: None (occurrence: None)
  Receive Date: 20071120
  Receipt Date: 20071110
  Transmission Date: 20080405
  Serious: Yes (Other)
  Sender: FDA-Public Use
  Company Number: CA-JNJFOC-20070802672

PATIENT
  Sex: Female
  Weight: 62 kg

DRUGS (14)
  1. REMICADE [Suspect]
     Dosage: 5TH INFUSION
     Route: 042
  2. REMICADE [Suspect]
     Dosage: 3 INFUSIONS ON UNKNOWN DATES
     Route: 042
  3. REMICADE [Suspect]
     Indication: RHEUMATOID ARTHRITIS
     Route: 042
  4. PREDNISONE TAB [Concomitant]
     Dosage: 20 YEARS
  5. METFORMIN HYDROCHLORIDE [Concomitant]
  6. GLYBURIDE [Concomitant]
  7. AVANDIA [Concomitant]
  8. CRESTOR [Concomitant]
  9. HYDROXYQUINOLINE [Concomitant]
  10. BENEDRYL [Concomitant]
     Indication: PREMEDICATION
     Route: 042
  11. TYLENOL [Concomitant]
     Indication: PREMEDICATION
     Route: 042
  12. ARAVA [Concomitant]
  13. NEXIUM [Concomitant]
  14. NOVAMILOR [Concomitant]

REACTIONS (4)
  - FEMUR FRACTURE [None]
  - HIP ARTHROPLASTY [None]
  - PRURITUS [None]
  - RASH [None]
